FAERS Safety Report 8920376 (Version 3)
Quarter: 2013Q2

REPORT INFORMATION
  Report Type: Report from Study
  Country: JP (occurrence: JP)
  Receive Date: 20121122
  Receipt Date: 20130415
  Transmission Date: 20140414
  Serious: Yes (Life-Threatening, Other)
  Sender: FDA-Public Use
  Company Number: PHHY2012JP104295

PATIENT
  Age: 73 Year
  Sex: Female

DRUGS (8)
  1. LEPONEX / CLOZARIL [Suspect]
     Indication: SCHIZOPHRENIA
     Dosage: 12.5 MG, UNK
     Route: 048
     Dates: start: 20121004, end: 20121004
  2. LEPONEX / CLOZARIL [Suspect]
     Dosage: 25 MG, UNK
     Route: 048
     Dates: start: 20121005, end: 20121010
  3. LEPONEX / CLOZARIL [Suspect]
     Dosage: 50 MG, UNK
     Route: 048
     Dates: start: 20121011, end: 20121017
  4. LEPONEX / CLOZARIL [Suspect]
     Dosage: 75 MG, UNK
     Route: 048
     Dates: start: 20121018, end: 20121101
  5. LEPONEX / CLOZARIL [Suspect]
     Dosage: 100 MG, UNK
     Route: 048
     Dates: start: 20121102, end: 20121108
  6. IMPROMEN [Concomitant]
     Dosage: 10 MG, UNK
     Route: 048
     Dates: start: 20121004, end: 20121107
  7. LAMICTAL [Concomitant]
     Indication: SCHIZOPHRENIA, DISORGANISED TYPE
     Dosage: 200 MG, UNK
     Route: 048
     Dates: start: 20121004
  8. MAGNESIUM OXIDE [Concomitant]
     Indication: SCHIZOPHRENIA, DISORGANISED TYPE
     Dosage: 500 MG, UNK
     Route: 048
     Dates: start: 20121004

REACTIONS (7)
  - Urinary tract infection [Recovering/Resolving]
  - Leukocytosis [Recovered/Resolved]
  - Pyrexia [Recovered/Resolved]
  - Neutrophil count increased [Unknown]
  - Hypophagia [Unknown]
  - Asthenia [Unknown]
  - Drug effect incomplete [Unknown]
